FAERS Safety Report 6937661-9 (Version None)
Quarter: 2010Q3

REPORT INFORMATION
  Report Type: 
  Country: None (occurrence: None)
  Receive Date: 20100820
  Receipt Date: 20100820
  Transmission Date: 20110219
  Serious: Yes (Disabling)
  Sender: FDA-Public Use
  Company Number: None

PATIENT
  Age: 54 Year
  Sex: Female
  Weight: 90.7194 kg

DRUGS (1)
  1. VICTOZA [Suspect]
     Indication: METABOLIC SYNDROME
     Dosage: 1.85 MCG DAILY SQ
     Route: 058
     Dates: start: 20100601, end: 20100713

REACTIONS (3)
  - ALOPECIA [None]
  - OROPHARYNGEAL PAIN [None]
  - THYROID DISORDER [None]
